FAERS Safety Report 24630665 (Version 1)
Quarter: 2024Q4

REPORT INFORMATION
  Report Type: Spontaneous
  Country: US (occurrence: None)
  Receive Date: 20241115
  Receipt Date: 20241115
  Transmission Date: 20250114
  Serious: No
  Sender: Public
  Company Number: None

PATIENT
  Sex: Female

DRUGS (4)
  1. NUCALA [Suspect]
     Active Substance: MEPOLIZUMAB
     Indication: Asthma
  2. MIRENA [Suspect]
     Active Substance: LEVONORGESTREL
     Dosage: OTHER FREQUENCY : EVERY28DAYS;?
     Route: 058
     Dates: start: 202408
  3. PREDNISONE [Concomitant]
  4. MIRENA IUD SYS [Concomitant]

REACTIONS (3)
  - Drug ineffective [None]
  - Influenza [None]
  - Inappropriate schedule of product administration [None]
